FAERS Safety Report 4379293-5 (Version None)
Quarter: 2004Q2

REPORT INFORMATION
  Report Type: 
  Country: None (occurrence: None)
  Receive Date: 20040610
  Receipt Date: 20040527
  Transmission Date: 20050107
  Serious: Yes (Other)
  Sender: FDA-Public Use
  Company Number: 2004-05-2420

PATIENT
  Sex: Female

DRUGS (1)
  1. CLARITIN-D [Suspect]
     Dosage: ORAL
     Route: 048

REACTIONS (3)
  - CONVULSION [None]
  - DRUG SCREEN POSITIVE [None]
  - VOMITING [None]
